FAERS Safety Report 15952445 (Version 1)
Quarter: 2019Q1

REPORT INFORMATION
  Report Type: Spontaneous
  Country: US (occurrence: US)
  Receive Date: 20190211
  Receipt Date: 20190211
  Transmission Date: 20190417
  Serious: Yes (Hospitalization)
  Sender: FDA-Public Use
  Company Number: US-AMREGENT-20190161

PATIENT
  Age: 34 Year
  Sex: Female

DRUGS (9)
  1. CALCITRIOL INJECTION, USP (0132-25) [Suspect]
     Active Substance: CALCITRIOL
     Dosage: 0.25 ??G TWICE DAILY
     Route: 065
  2. CALCIUM GLUCONATE. [Suspect]
     Active Substance: CALCIUM GLUCONATE
     Dosage: UNKNOWN
     Route: 042
  3. CALCIUM CHLORIDE INJECTION USP 10% (0517-6710-01) [Suspect]
     Active Substance: CALCIUM CHLORIDE
     Dosage: UNKNOWN
     Route: 042
  4. CALCIUM CARBONATE. [Suspect]
     Active Substance: CALCIUM CARBONATE
     Dosage: 1500 MG 3 TIMES DAILY
     Route: 065
  5. AZATHIOPRINE. [Concomitant]
     Active Substance: AZATHIOPRINE
     Dosage: 150 MG DAILY
  6. NO DRUG NAME [Concomitant]
     Dosage: UNKNOWN
     Route: 042
  7. NO DRUG NAME [Concomitant]
     Dosage: UNKNOWN
     Route: 048
  8. NO DRUG NAME [Concomitant]
     Dosage: UNKNOWN
     Route: 048
  9. PREDNISONE. [Concomitant]
     Active Substance: PREDNISONE
     Dosage: 60 MG
     Route: 048

REACTIONS (4)
  - Off label use [Unknown]
  - Hypercalcaemia [Recovered/Resolved]
  - Inappropriate schedule of product administration [Unknown]
  - Acute kidney injury [Recovered/Resolved]
